FAERS Safety Report 5632521-8 (Version None)
Quarter: 2008Q1

REPORT INFORMATION
  Report Type: 
  Country: None (occurrence: None)
  Receive Date: 20080219
  Receipt Date: 20080205
  Transmission Date: 20080703
  Serious: Yes (Hospitalization)
  Sender: FDA-Public Use
  Company Number: 230001L08USA

PATIENT
  Age: 58 Year
  Sex: Male

DRUGS (3)
  1. REBIF [Suspect]
  2. METHOTREXATE [Concomitant]
  3. RITUXIMAB [Concomitant]

REACTIONS (3)
  - FAT NECROSIS [None]
  - INJECTION SITE REACTION [None]
  - NEUTROPHILIC PANNICULITIS [None]
